FAERS Safety Report 6920669-7 (Version None)
Quarter: 2010Q3

REPORT INFORMATION
  Report Type: 
  Country: None (occurrence: None)
  Receive Date: 20100812
  Receipt Date: 20100806
  Transmission Date: 20110219
  Serious: Yes (Life-Threatening, Other)
  Sender: FDA-Public Use
  Company Number: US-BAYER-201030187NA

PATIENT
  Sex: Female

DRUGS (1)
  1. YAZ [Suspect]
     Indication: PRODUCT USED FOR UNKNOWN INDICATION
     Route: 048

REACTIONS (5)
  - ASTHENIA [None]
  - DEEP VEIN THROMBOSIS [None]
  - FATIGUE [None]
  - GALLBLADDER NON-FUNCTIONING [None]
  - PULMONARY EMBOLISM [None]
